FAERS Safety Report 14932854 (Version 10)
Quarter: 2023Q4

REPORT INFORMATION
  Report Type: Report from Study
  Country: US (occurrence: US)
  Receive Date: 20180524
  Receipt Date: 20231121
  Transmission Date: 20240110
  Serious: Yes (Hospitalization, Other)
  Sender: FDA-Public Use
  Company Number: US-ACADIA PHARMACEUTICALS INC.-ACA-2018-008450

PATIENT
  Sex: Male
  Weight: 72 kg

DRUGS (14)
  1. NUPLAZID [Suspect]
     Active Substance: PIMAVANSERIN TARTRATE
     Indication: Parkinson^s disease psychosis
     Dosage: 34 MILLIGRAM, QD NIGHTLY
     Route: 048
     Dates: start: 20180115
  2. NUPLAZID [Suspect]
     Active Substance: PIMAVANSERIN TARTRATE
     Indication: Hallucination
  3. NUPLAZID [Suspect]
     Active Substance: PIMAVANSERIN TARTRATE
     Indication: Delusion
  4. NUPLAZID [Suspect]
     Active Substance: PIMAVANSERIN TARTRATE
     Indication: Dyskinesia
  5. NUPLAZID [Suspect]
     Active Substance: PIMAVANSERIN TARTRATE
     Indication: Hallucination
     Dosage: 34 MG, QD
     Route: 065
     Dates: start: 201803
  6. NUPLAZID [Suspect]
     Active Substance: PIMAVANSERIN TARTRATE
     Indication: Parkinson^s disease
  7. LIPITOR [Concomitant]
     Active Substance: ATORVASTATIN CALCIUM
  8. SINEMET [Concomitant]
     Active Substance: CARBIDOPA\LEVODOPA
  9. ROPINIROLE [Concomitant]
     Active Substance: ROPINIROLE
     Indication: Parkinson^s disease
     Dosage: 8 MILLIGRAM, QD
  10. VITAMIN D [Concomitant]
     Active Substance: VITAMIN D NOS
  11. VITAMIN C [Concomitant]
     Active Substance: ASCORBIC ACID
  12. IRON [Concomitant]
     Active Substance: IRON
  13. CARBIDOPA\LEVODOPA [Concomitant]
     Active Substance: CARBIDOPA\LEVODOPA
     Indication: Parkinson^s disease
  14. PROBIOTICS NOS [Concomitant]
     Active Substance: PROBIOTICS NOS
     Dosage: 2.5 B CELL

REACTIONS (18)
  - Foreign body in throat [Unknown]
  - Syncope [Unknown]
  - Fall [Unknown]
  - Drug interaction [Unknown]
  - Insomnia [Not Recovered/Not Resolved]
  - Pollakiuria [Not Recovered/Not Resolved]
  - Back injury [Not Recovered/Not Resolved]
  - Contusion [Not Recovered/Not Resolved]
  - Balance disorder [Not Recovered/Not Resolved]
  - Dysstasia [Not Recovered/Not Resolved]
  - Insomnia [Not Recovered/Not Resolved]
  - Sleep disorder [Recovered/Resolved]
  - Anaemia [Unknown]
  - Confusional state [Unknown]
  - Therapeutic product effect decreased [Unknown]
  - Fall [Not Recovered/Not Resolved]
  - Fall [Not Recovered/Not Resolved]
  - Fall [Unknown]

NARRATIVE: CASE EVENT DATE: 20180101
